FAERS Safety Report 6267936-0 (Version None)
Quarter: 2009Q3

REPORT INFORMATION
  Report Type: 
  Country: None (occurrence: None)
  Receive Date: 20090714
  Receipt Date: 20090707
  Transmission Date: 20100115
  Serious: Yes (Death)
  Sender: FDA-Public Use
  Company Number: US-GILEAD-2009-0022978

PATIENT
  Age: 45 Year
  Sex: Male
  Weight: 56.296 kg

DRUGS (15)
  1. LETAIRIS [Suspect]
     Indication: PULMONARY ARTERIAL HYPERTENSION
     Route: 048
     Dates: start: 20080724
  2. REVATIO [Concomitant]
  3. METOPROLOL TARTRATE [Concomitant]
  4. PREDNISONE TAB [Concomitant]
  5. ALBUTEROL [Concomitant]
  6. XOPENEX [Concomitant]
  7. SINGULAIR [Concomitant]
  8. ADVAIR HFA [Concomitant]
  9. SPIRIVA [Concomitant]
  10. ALPRAZOLAM [Concomitant]
  11. PROTONIX [Concomitant]
  12. ZYRTEC [Concomitant]
  13. PAROXETINE HCL [Concomitant]
  14. MULTI-VITAMIN [Concomitant]
  15. CALCIUM +D [Concomitant]

REACTIONS (1)
  - DEATH [None]
